FAERS Safety Report 16333992 (Version 2)
Quarter: 2019Q2

REPORT INFORMATION
  Report Type: Spontaneous
  Country: US (occurrence: US)
  Receive Date: 20190520
  Receipt Date: 20190531
  Transmission Date: 20190711
  Serious: Yes (Other)
  Sender: FDA-Public Use
  Company Number: US-JNJFOC-20190512223

PATIENT

DRUGS (1)
  1. HUMAN CLOTTABLE PROTEIN [Suspect]
     Active Substance: FIBRINOGEN HUMAN\THROMBIN HUMAN
     Indication: CEREBROSPINAL FLUID LEAKAGE
     Route: 061

REACTIONS (3)
  - Product use in unapproved indication [Unknown]
  - Meningitis [Unknown]
  - Off label use [Unknown]
